FAERS Safety Report 10041061 (Version 2)
Quarter: 2014Q1

REPORT INFORMATION
  Report Type: Spontaneous
  Country: JP (occurrence: JP)
  Receive Date: 20140327
  Receipt Date: 20140327
  Transmission Date: 20141002
  Serious: Yes (Other)
  Sender: FDA-Public Use
  Company Number: JP-009507513-1403JPN004976

PATIENT
  Sex: 0

DRUGS (1)
  1. JANUVIA TABLETS 50MG [Suspect]
     Indication: HYPERGLYCAEMIA
     Dosage: 50 MG ONCE A DAY
     Route: 048
     Dates: start: 201307, end: 201403

REACTIONS (1)
  - Blood creatine phosphokinase increased [Unknown]
